FAERS Safety Report 23429964 (Version 1)
Quarter: 2024Q1

REPORT INFORMATION
  Report Type: Spontaneous
  Country: US (occurrence: US)
  Receive Date: 20240122
  Receipt Date: 20240122
  Transmission Date: 20240409
  Serious: Yes (Other)
  Sender: FDA-Public Use
  Company Number: US-BRISTOL-MYERS SQUIBB COMPANY-2024-010963

PATIENT
  Sex: Male

DRUGS (3)
  1. APIXABAN [Suspect]
     Active Substance: APIXABAN
     Indication: Embolism venous
  2. APIXABAN [Suspect]
     Active Substance: APIXABAN
     Dosage: INCREASED DOSE
  3. APIXABAN [Suspect]
     Active Substance: APIXABAN
     Dosage: DECREASED DOSE

REACTIONS (1)
  - Embolism venous [Unknown]
